FAERS Safety Report 4602771-8 (Version None)
Quarter: 2005Q1

REPORT INFORMATION
  Report Type: 
  Country: None (occurrence: None)
  Receive Date: 20050309
  Receipt Date: 20050301
  Transmission Date: 20050727
  Serious: Yes (Hospitalization)
  Sender: FDA-Public Use
  Company Number: US-JNJFOC-20050300872

PATIENT
  Age: 28 Year
  Sex: Female
  Weight: 65.77 kg

DRUGS (5)
  1. LEVAQUIN [Suspect]
  2. ZOLOFT [Concomitant]
     Indication: DEPRESSION
  3. TRI-NORINYL 21-DAY [Concomitant]
  4. TRI-NORINYL 21-DAY [Concomitant]
  5. TRANSDERM SCOPALAMINE [Concomitant]
     Dates: start: 20050212, end: 20050219

REACTIONS (6)
  - ANOREXIA [None]
  - APHASIA [None]
  - CONFUSIONAL STATE [None]
  - DELIRIUM [None]
  - EATING DISORDER [None]
  - INSOMNIA [None]
